FAERS Safety Report 7750307-5 (Version None)
Quarter: 2011Q3

REPORT INFORMATION
  Report Type: 
  Country: None (occurrence: None)
  Receive Date: 20110914
  Receipt Date: 20110901
  Transmission Date: 20111222
  Serious: Yes (Hospitalization)
  Sender: FDA-Public Use
  Company Number: US-ELI_LILLY_AND_COMPANY-US201109001309

PATIENT
  Sex: Male

DRUGS (19)
  1. PRADAXA [Concomitant]
  2. DUTASTERIDE [Concomitant]
  3. POTASSIUM CHLORIDE [Concomitant]
  4. DOXICYCLINE                        /00055701/ [Concomitant]
  5. BROMAX                             /00546002/ [Concomitant]
  6. ALBUTEROL SULFATE AND IPRATROPIUM BROMIDE [Concomitant]
  7. FUROSEMIDE [Concomitant]
  8. ZITHROMAX [Concomitant]
  9. HYDROCODONE [Concomitant]
  10. TRAMADOL HCL [Concomitant]
  11. LESCOL XL [Concomitant]
  12. MEGESTROL ACETATE [Concomitant]
  13. TAMSULOSIN HYDROCHLORIDE [Concomitant]
  14. ASPIRIN [Concomitant]
  15. BUTRANS [Concomitant]
  16. FORTEO [Suspect]
     Indication: OSTEOPOROSIS
     Dosage: 20 UG, QD
     Dates: start: 20110701
  17. CARTIA XT [Concomitant]
  18. MUCINEX [Concomitant]
  19. PREDNISONE [Concomitant]

REACTIONS (7)
  - BACK DISORDER [None]
  - WEIGHT DECREASED [None]
  - PNEUMONIA [None]
  - GASTROINTESTINAL HAEMORRHAGE [None]
  - DYSPNOEA EXERTIONAL [None]
  - WHITE BLOOD CELL COUNT DECREASED [None]
  - DIARRHOEA [None]
